FAERS Safety Report 24450744 (Version 2)
Quarter: 2024Q4

REPORT INFORMATION
  Report Type: Report from Study
  Country: CO (occurrence: CO)
  Receive Date: 20241017
  Receipt Date: 20241101
  Transmission Date: 20250115
  Serious: Yes (Other)
  Sender: ABBVIE
  Company Number: CO-ABBVIE-5963736

PATIENT
  Age: 59 Year
  Sex: Male
  Weight: 89 kg

DRUGS (3)
  1. SKYRIZI [Suspect]
     Active Substance: RISANKIZUMAB-RZAA
     Indication: Psoriasis
     Dosage: FORM STRENGTH: 150 MILLIGRAM
     Route: 058
     Dates: start: 20210408, end: 20240712
  2. METHOTREXATE [Concomitant]
     Active Substance: METHOTREXATE
     Indication: Psoriasis
     Dosage: UNKNOWN
  3. DIOSMIN\HESPERIDIN [Suspect]
     Active Substance: DIOSMIN\HESPERIDIN
     Indication: Haemorrhoids
     Dosage: 450MG + 50MG
     Route: 048
     Dates: start: 20241001

REACTIONS (9)
  - Cyst [Recovered/Resolved]
  - Faeces discoloured [Not Recovered/Not Resolved]
  - Discomfort [Not Recovered/Not Resolved]
  - Diarrhoea [Recovered/Resolved]
  - Diarrhoea [Not Recovered/Not Resolved]
  - Gastrointestinal inflammation [Unknown]
  - Anorectal discomfort [Unknown]
  - Proctalgia [Unknown]
  - Colitis [Unknown]

NARRATIVE: CASE EVENT DATE: 20230101
